FAERS Safety Report 9995608 (Version 1)
Quarter: 2014Q1

REPORT INFORMATION
  Report Type: Spontaneous
  Country: US (occurrence: None)
  Receive Date: 20140304
  Receipt Date: 20140304
  Transmission Date: 20141002
  Serious: Yes (Other)
  Sender: FDA-Public Use
  Company Number: RB-53997-2013

PATIENT
  Sex: 0

DRUGS (5)
  1. SUBOXONE 8 MG [Suspect]
     Indication: PRODUCT USED FOR UNKNOWN INDICATION
     Route: 064
     Dates: start: 20120515, end: 20120731
  2. SUBUTEX [Suspect]
     Indication: PRODUCT USED FOR UNKNOWN INDICATION
     Route: 064
  3. ZOLOFT [Suspect]
     Indication: ANXIETY
     Route: 064
  4. ZOLOFT [Suspect]
     Indication: DEPRESSION
     Route: 064
  5. LEVOTHYROXIN [Suspect]
     Indication: HYPOTHYROIDISM
     Route: 064

REACTIONS (2)
  - Foetal exposure during pregnancy [None]
  - Drug withdrawal syndrome neonatal [None]
